FAERS Safety Report 16348556 (Version 2)
Quarter: 2019Q2

REPORT INFORMATION
  Report Type: Spontaneous
  Country: JP (occurrence: JP)
  Receive Date: 20190523
  Receipt Date: 20190607
  Transmission Date: 20190711
  Serious: Yes (Other)
  Sender: FDA-Public Use
  Company Number: PHJP2019JP005392

PATIENT
  Age: 64 Year
  Sex: Male

DRUGS (1)
  1. COSENTYX [Suspect]
     Active Substance: SECUKINUMAB
     Indication: PSORIASIS
     Dosage: 300 MG, UNK
     Route: 058
     Dates: start: 201709

REACTIONS (10)
  - Staphylococcal infection [Unknown]
  - Papule [Unknown]
  - Skin induration [Unknown]
  - Rash [Recovered/Resolved]
  - Rash pustular [Unknown]
  - Pain [Unknown]
  - General symptom [Recovered/Resolved]
  - Pyrexia [Recovered/Resolved]
  - Furuncle [Recovered/Resolved]
  - Erythema [Unknown]

NARRATIVE: CASE EVENT DATE: 201804
